FAERS Safety Report 25531766 (Version 1)
Quarter: 2025Q3

REPORT INFORMATION
  Report Type: Spontaneous
  Country: CN (occurrence: CN)
  Receive Date: 20250709
  Receipt Date: 20250709
  Transmission Date: 20251020
  Serious: Yes (Hospitalization)
  Sender: BEIGENE
  Company Number: CN-BEIGENE-BGN-2025-010612

PATIENT
  Age: 71 Year
  Weight: 52 kg

DRUGS (8)
  1. TISLELIZUMAB [Suspect]
     Active Substance: TISLELIZUMAB
     Indication: Lung neoplasm malignant
     Dosage: 100 MILLIGRAM, Q3WK, D3
  2. TISLELIZUMAB [Suspect]
     Active Substance: TISLELIZUMAB
     Dosage: 100 MILLIGRAM, Q3WK, D3
     Route: 041
  3. TISLELIZUMAB [Suspect]
     Active Substance: TISLELIZUMAB
     Dosage: 100 MILLIGRAM, Q3WK, D3
     Route: 041
  4. TISLELIZUMAB [Suspect]
     Active Substance: TISLELIZUMAB
     Dosage: 100 MILLIGRAM, Q3WK, D3
  5. PACLITAXEL [Concomitant]
     Active Substance: PACLITAXEL
     Indication: Lung neoplasm malignant
     Dosage: 180 MILLIGRAM, Q3WK, D2
     Route: 041
  6. PACLITAXEL [Concomitant]
     Active Substance: PACLITAXEL
     Dosage: 180 MILLIGRAM, Q3WK, D2
  7. NEDAPLATIN [Concomitant]
     Active Substance: NEDAPLATIN
     Indication: Lung neoplasm malignant
     Dosage: 50 MILLIGRAM, Q3WK, D1-2
     Route: 041
  8. NEDAPLATIN [Concomitant]
     Active Substance: NEDAPLATIN
     Dosage: 50 MILLIGRAM, Q3WK, D1-2

REACTIONS (2)
  - Autoimmune hepatitis [Recovering/Resolving]
  - Prescribed underdose [Unknown]
